FAERS Safety Report 8372012-7 (Version None)
Quarter: 2012Q2

REPORT INFORMATION
  Report Type: 
  Country: None (occurrence: None)
  Receive Date: 20120518
  Receipt Date: 20120504
  Transmission Date: 20120825
  Serious: Yes (Other)
  Sender: FDA-Public Use
  Company Number: CHPA2012US003036

PATIENT
  Age: 60 Year
  Sex: Female

DRUGS (1)
  1. EXCEDRIN (MIGRAINE) [Suspect]
     Indication: MIGRAINE
     Dosage: UNK , UNK
     Route: 048
     Dates: start: 20120101

REACTIONS (2)
  - DRUG INEFFECTIVE [None]
  - HYPERTENSION [None]
